FAERS Safety Report 23699330 (Version 1)
Quarter: 2024Q2

REPORT INFORMATION
  Report Type: Spontaneous
  Country: SI (occurrence: SI)
  Receive Date: 20240402
  Receipt Date: 20240402
  Transmission Date: 20240717
  Serious: Yes (Hospitalization, Other)
  Sender: FDA-Public Use
  Company Number: None

PATIENT
  Age: 81 Year
  Sex: Female

DRUGS (20)
  1. CERTICAN [Suspect]
     Active Substance: EVEROLIMUS
     Indication: Renal transplant
     Dosage: 0.5 MG, STRENGHT: 0,5 MGDOSE: 1 MG 2 X NA DAN
     Route: 048
     Dates: start: 20240301, end: 20240320
  2. VALCYTE [Concomitant]
     Active Substance: VALGANCICLOVIR HYDROCHLORIDE
     Indication: Product used for unknown indication
     Dosage: 900 MG EVERY 12 HOURS
     Route: 048
  3. ROCALTROL [Concomitant]
     Active Substance: CALCITRIOL
     Indication: Product used for unknown indication
     Dosage: 0.25 MG, QD, IN THE MORNING, (STRENGTH: 0.25 MCG)
     Route: 048
  4. CALCIUM CARBONATE [Concomitant]
     Active Substance: CALCIUM CARBONATE
     Indication: Product used for unknown indication
     Dosage: 1 G
     Route: 065
  5. ARTELAC [Concomitant]
     Indication: Product used for unknown indication
     Dosage: 1 DRP, STRENGHT: 3,2 MG/MLDOSE: 4 X DAILY 1 GTT IN BOTH EYES
  6. LASIX [Concomitant]
     Active Substance: FUROSEMIDE
     Indication: Product used for unknown indication
     Dosage: 40 MG, 1 TABLET EVERY 2 DAYS
     Route: 048
  7. TOBREX [Concomitant]
     Active Substance: TOBRAMYCIN
     Indication: Product used for unknown indication
     Dosage: STRENGHT: 3 MG/GDOSE: IN BOTH EYES IN THE EVENING BEFORE GOING TO BED
  8. ALPRAZOLAM [Concomitant]
     Active Substance: ALPRAZOLAM
     Indication: Insomnia
     Dosage: IN THE EVENING  IF NECESSARY
     Route: 048
  9. ALPRAZOLAM [Concomitant]
     Active Substance: ALPRAZOLAM
     Indication: Anxiety
  10. LEVOFLOXACIN [Concomitant]
     Active Substance: LEVOFLOXACIN
     Indication: Product used for unknown indication
     Dosage: 500 MG IV EVERY 24 HOURS
     Route: 043
  11. BUPRENORPHINE [Concomitant]
     Active Substance: BUPRENORPHINE
     Indication: Product used for unknown indication
     Dosage: STRENGHT: 35 MICROGRAMS/H EVERY 72 HOURSDOSE: EVERY 72 HOURS
     Route: 062
  12. ESOMEPRAZOLE MAGNESIUM [Concomitant]
     Active Substance: ESOMEPRAZOLE MAGNESIUM
     Indication: Product used for unknown indication
     Dosage: 1 CAPS IN THE MORNING
     Route: 048
  13. LACTECON [Concomitant]
     Indication: Constipation
     Dosage: STRENGHT:DOSE: 50 ML
     Route: 054
  14. LEVETIRACETAM [Concomitant]
     Active Substance: LEVETIRACETAM
     Indication: Product used for unknown indication
     Dosage: 1000 MG/12 HOURS
     Route: 048
  15. ROJAZOL [Concomitant]
     Indication: Product used for unknown indication
     Dosage: STRENGHT: 20 MG/GDOSE. 4 TIMES HALF A TEASPOON
     Route: 065
  16. CYCLOSPORINE [Concomitant]
     Active Substance: CYCLOSPORINE
     Indication: Product used for unknown indication
     Dosage: 25 MG, BID, 2X1
     Route: 048
  17. TOBREX [Concomitant]
     Active Substance: TOBRAMYCIN
     Indication: Product used for unknown indication
     Dosage: STRENGHT: 3 MG/MLDOSE: 1 DROP IN THE RIGHT AND LEFT EYE 4 TIMES A DAY
  18. NADROPARIN CALCIUM [Concomitant]
     Active Substance: NADROPARIN CALCIUM
     Indication: Product used for unknown indication
     Dosage: 3800 IU, Q24H, STRENGHT: 3800 I.E. ANTI-XA/0,4 MLDOSE: 3800 UNITS EVERY 24 HOURS
     Route: 058
  19. PERINDOPRIL [Concomitant]
     Active Substance: PERINDOPRIL
     Indication: Product used for unknown indication
     Dosage: IN THE MORNING
     Route: 048
  20. DULCOLAX [Concomitant]
     Indication: Constipation
     Dosage: 1 SUPP IF NECESSARY
     Route: 054

REACTIONS (4)
  - Mouth haemorrhage [Recovering/Resolving]
  - Stomatitis [Recovering/Resolving]
  - Oral mucosa erosion [Recovering/Resolving]
  - Feeding disorder [Recovering/Resolving]

NARRATIVE: CASE EVENT DATE: 20240316
